FAERS Safety Report 7413020-X (Version None)
Quarter: 2011Q2

REPORT INFORMATION
  Report Type: 
  Country: None (occurrence: None)
  Receive Date: 20110413
  Receipt Date: 20110407
  Transmission Date: 20111010
  Serious: No
  Sender: FDA-Public Use
  Company Number: US-ROXANE LABORATORIES, INC.-2011-RO-00228RO

PATIENT
  Sex: Male

DRUGS (5)
  1. FLUTICASONE PROPIONATE [Suspect]
     Indication: RHINITIS
     Route: 045
  2. ZOCOR [Concomitant]
     Indication: BLOOD CHOLESTEROL INCREASED
     Dosage: 40 MG
  3. SYNTHROID [Concomitant]
     Indication: THYROID THERAPY
     Dosage: 0.112 MG
  4. OXAPROZIN [Concomitant]
     Indication: ARTHRITIS
     Dosage: 1200 MG
  5. DETROL [Concomitant]
     Dosage: 4 MG

REACTIONS (4)
  - AGEUSIA [None]
  - CONDITION AGGRAVATED [None]
  - ANOSMIA [None]
  - DRUG INEFFECTIVE [None]
